FAERS Safety Report 13029030 (Version 1)
Quarter: 2016Q4

REPORT INFORMATION
  Report Type: Spontaneous
  Country: US (occurrence: US)
  Receive Date: 20161214
  Receipt Date: 20161214
  Transmission Date: 20170207
  Serious: No
  Sender: FDA-Public Use
  Company Number: US-BAUSCH-BL-2016-003667

PATIENT
  Age: 50 Year
  Sex: Male
  Weight: 84.9 kg

DRUGS (2)
  1. CARAC [Suspect]
     Active Substance: FLUOROURACIL
     Indication: ACTINIC KERATOSIS
     Dosage: ONCE DAILY TO FOREARMS
     Route: 061
     Dates: start: 201601, end: 2016
  2. CARAC [Suspect]
     Active Substance: FLUOROURACIL
     Dosage: ONCE DAILY TO CHEEKS AND TEMPLES
     Route: 061
     Dates: start: 20160129

REACTIONS (4)
  - Hyperaesthesia [Not Recovered/Not Resolved]
  - Burning sensation [Not Recovered/Not Resolved]
  - Rash macular [Not Recovered/Not Resolved]
  - Erythema [Not Recovered/Not Resolved]

NARRATIVE: CASE EVENT DATE: 201601
